FAERS Safety Report 19633843 (Version 1)
Quarter: 2021Q3

REPORT INFORMATION
  Report Type: Report from Study
  Country: FR (occurrence: FR)
  Receive Date: 20210730
  Receipt Date: 20210730
  Transmission Date: 20211014
  Serious: Yes (Other)
  Sender: FDA-Public Use
  Company Number: FR-SUN PHARMACEUTICAL INDUSTRIES LTD-2021R1-305895

PATIENT
  Age: 66 Year
  Sex: Male

DRUGS (2)
  1. VERNAKALANT. [Interacting]
     Active Substance: VERNAKALANT
     Indication: ATRIAL FIBRILLATION
     Dosage: UNK
     Route: 042
  2. FLECAINIDE [Suspect]
     Active Substance: FLECAINIDE
     Indication: ATRIAL FIBRILLATION
     Dosage: 300 MG
     Route: 048

REACTIONS (3)
  - Sinus arrest [Recovered/Resolved]
  - Dizziness [Recovered/Resolved]
  - Drug interaction [Unknown]
